FAERS Safety Report 23454073 (Version 1)
Quarter: 2024Q1

REPORT INFORMATION
  Report Type: Spontaneous
  Country: CN (occurrence: CN)
  Receive Date: 20240130
  Receipt Date: 20240130
  Transmission Date: 20240410
  Serious: Yes (Other)
  Sender: FDA-Public Use
  Company Number: CN-ALCON LABORATORIES-ALC2024CN000702

PATIENT
  Age: 43 Year
  Sex: Male
  Weight: 67 kg

DRUGS (1)
  1. FLUORESCEIN SODIUM [Suspect]
     Active Substance: FLUORESCEIN SODIUM
     Indication: Uveitis
     Dosage: 5 ML, QD
     Route: 042
     Dates: start: 20240108, end: 20240108

REACTIONS (1)
  - Papule [Recovering/Resolving]

NARRATIVE: CASE EVENT DATE: 20240108
